FAERS Safety Report 10329466 (Version 1)
Quarter: 2014Q3

REPORT INFORMATION
  Report Type: Spontaneous
  Country: DK (occurrence: GB)
  Receive Date: 20140721
  Receipt Date: 20140721
  Transmission Date: 20150326
  Serious: Yes (Other)
  Sender: FDA-Public Use
  Company Number: GB-FRI-1000068982

PATIENT
  Age: 43 Year
  Sex: Female

DRUGS (6)
  1. CITALOPRAM [Suspect]
     Active Substance: CITALOPRAM HYDROBROMIDE
     Dosage: 40 MG ONCE DAILY
     Route: 048
     Dates: start: 201404, end: 201405
  2. CITALOPRAM [Suspect]
     Active Substance: CITALOPRAM HYDROBROMIDE
     Dosage: 10 MG ONCE DAILY
     Route: 048
     Dates: start: 201406
  3. PROPRANOLOL [Concomitant]
     Active Substance: PROPRANOLOL\PROPRANOLOL HYDROCHLORIDE
     Dosage: 40 MG ONCE DAILY
  4. CITALOPRAM [Suspect]
     Active Substance: CITALOPRAM HYDROBROMIDE
     Dosage: 30 MG ONCE DAILY
     Route: 048
     Dates: start: 201405, end: 201406
  5. CITALOPRAM [Suspect]
     Active Substance: CITALOPRAM HYDROBROMIDE
     Dosage: 20 MG ONCE DAILY
     Route: 048
     Dates: start: 2012, end: 201404
  6. CITALOPRAM [Suspect]
     Active Substance: CITALOPRAM HYDROBROMIDE
     Indication: ANXIETY
     Dosage: 20 MG DAILY
     Route: 048
     Dates: start: 2004, end: 2012

REACTIONS (3)
  - Confusional state [Unknown]
  - Amnesia [Unknown]
  - Stress [Unknown]

NARRATIVE: CASE EVENT DATE: 201312
